FAERS Safety Report 19552295 (Version 2)
Quarter: 2021Q3

REPORT INFORMATION
  Report Type: Spontaneous
  Country: IL (occurrence: IL)
  Receive Date: 20210715
  Receipt Date: 20210726
  Transmission Date: 20211014
  Serious: Yes (Other)
  Sender: FDA-Public Use
  Company Number: IL-SA-2021SA229915

PATIENT
  Sex: Female

DRUGS (1)
  1. CABLIVI [Suspect]
     Active Substance: CAPLACIZUMAB-YHDP
     Indication: THROMBOTIC THROMBOCYTOPENIC PURPURA

REACTIONS (5)
  - Conjunctival haemorrhage [Unknown]
  - Rectal haemorrhage [Unknown]
  - Gingival bleeding [Unknown]
  - Vaginal haemorrhage [Unknown]
  - Haematoma [Unknown]
